FAERS Safety Report 22183701 (Version 5)
Quarter: 2024Q4

REPORT INFORMATION
  Report Type: Spontaneous
  Country: US (occurrence: US)
  Receive Date: 20230406
  Receipt Date: 20241113
  Transmission Date: 20250115
  Serious: No
  Sender: PFIZER
  Company Number: US-PFIZER INC-2021229947

PATIENT
  Age: 83 Year
  Sex: Female

DRUGS (3)
  1. BRAFTOVI [Suspect]
     Active Substance: ENCORAFENIB
     Indication: Colon cancer
     Dosage: 225 MG (3 PILLS)
  2. BRAFTOVI [Suspect]
     Active Substance: ENCORAFENIB
     Dosage: 150 MG, 1X/DAY (2 CAPSULES BY ORAL ROUTE EVERY DAY)
     Route: 048
  3. MEKTOVI [Concomitant]
     Active Substance: BINIMETINIB
     Dosage: UNK

REACTIONS (3)
  - Off label use [Unknown]
  - Off label use [Unknown]
  - Product use issue [Unknown]
